FAERS Safety Report 7240909-7 (Version None)
Quarter: 2011Q1

REPORT INFORMATION
  Report Type: 
  Country: None (occurrence: None)
  Receive Date: 20110124
  Receipt Date: 20110111
  Transmission Date: 20110831
  Serious: Yes (Other)
  Sender: FDA-Public Use
  Company Number: PHHY2011BR02884

PATIENT
  Sex: Male
  Weight: 75 kg

DRUGS (5)
  1. MANIDIPINE HYDROCHLORIDE [Concomitant]
     Dosage: UNK
  2. ATENOLOL [Concomitant]
     Dosage: UNK
  3. EPOGEN [Concomitant]
     Dosage: UNK
  4. DIOVAN [Suspect]
     Indication: HYPERTENSION
     Dosage: UNK
  5. MIDAZOLAM [Concomitant]
     Dosage: UNK

REACTIONS (4)
  - VEIN DISORDER [None]
  - OEDEMA PERIPHERAL [None]
  - DRUG INEFFECTIVE [None]
  - BLOOD PRESSURE INADEQUATELY CONTROLLED [None]
